FAERS Safety Report 24831275 (Version 1)
Quarter: 2025Q1

REPORT INFORMATION
  Report Type: Spontaneous
  Country: US (occurrence: US)
  Receive Date: 20250110
  Receipt Date: 20250110
  Transmission Date: 20250409
  Serious: No
  Sender: MYLAN
  Company Number: US-MYLANLABS-2024M1115193

PATIENT
  Sex: Female

DRUGS (1)
  1. LIPITOR [Suspect]
     Active Substance: ATORVASTATIN CALCIUM
     Indication: Blood cholesterol increased
     Route: 065

REACTIONS (4)
  - Cardiac disorder [Unknown]
  - Carpal tunnel syndrome [Unknown]
  - Hepatic function abnormal [Unknown]
  - Dyspnoea [Unknown]
